FAERS Safety Report 6530883-0 (Version None)
Quarter: 2010Q1

REPORT INFORMATION
  Report Type: 
  Country: None (occurrence: None)
  Receive Date: 20100108
  Receipt Date: 20090505
  Transmission Date: 20100710
  Serious: No
  Sender: FDA-Public Use
  Company Number: A0782582A

PATIENT
  Sex: Male

DRUGS (1)
  1. LOVAZA [Suspect]
     Dosage: 2MG PER DAY
     Route: 048

REACTIONS (1)
  - URTICARIA [None]
